FAERS Safety Report 16260569 (Version 1)
Quarter: 2019Q2

REPORT INFORMATION
  Report Type: Spontaneous
  Country: US (occurrence: US)
  Receive Date: 20190430
  Receipt Date: 20190430
  Transmission Date: 20190711
  Serious: Yes (Death)
  Sender: FDA-Public Use
  Company Number: None

PATIENT
  Sex: Female
  Weight: 74.3 kg

DRUGS (21)
  1. FOLIC ACID. [Concomitant]
     Active Substance: FOLIC ACID
  2. POTASSIUM CHLORIDE. [Concomitant]
     Active Substance: POTASSIUM CHLORIDE
  3. MIRTAZAPINE. [Concomitant]
     Active Substance: MIRTAZAPINE
  4. FLUCONAZOLE. [Concomitant]
     Active Substance: FLUCONAZOLE
  5. LORAZEPAM. [Concomitant]
     Active Substance: LORAZEPAM
  6. NYSTATIN. [Concomitant]
     Active Substance: NYSTATIN
  7. TARCEVA [Suspect]
     Active Substance: ERLOTINIB HYDROCHLORIDE
     Indication: LUNG CARCINOMA CELL TYPE UNSPECIFIED STAGE 0
     Route: 048
     Dates: start: 20190314, end: 20190430
  8. ONDANSETRON [Concomitant]
     Active Substance: ONDANSETRON
  9. ALBUTEROL. [Concomitant]
     Active Substance: ALBUTEROL
  10. MUCINEX [Concomitant]
     Active Substance: GUAIFENESIN
  11. HYDROCODONE-HOMATROPINE [Concomitant]
  12. OXYBUTYNIN. [Concomitant]
     Active Substance: OXYBUTYNIN CHLORIDE
  13. EFFEXOR XR [Concomitant]
     Active Substance: VENLAFAXINE HYDROCHLORIDE
  14. BREO ELLIPTA [Concomitant]
     Active Substance: FLUTICASONE FUROATE\VILANTEROL TRIFENATATE
  15. SENEXON-S [Concomitant]
     Active Substance: DOCUSATE SODIUM\SENNOSIDES A AND B
  16. FENTANYL. [Concomitant]
     Active Substance: FENTANYL
  17. OXYCODONE [Concomitant]
     Active Substance: OXYCODONE
  18. XARELTO [Concomitant]
     Active Substance: RIVAROXABAN
  19. FUROSEMIDE. [Concomitant]
     Active Substance: FUROSEMIDE
  20. GABAPENTIN. [Concomitant]
     Active Substance: GABAPENTIN
  21. MAGIC MOUTHWASH [Concomitant]
     Active Substance: DIPHENHYDRAMINE HYDROCHLORIDE\LIDOCAINE HYDROCHLORIDE\NYSTATIN

REACTIONS (1)
  - Death [None]
